FAERS Safety Report 9384911 (Version 1)
Quarter: 2013Q3

REPORT INFORMATION
  Report Type: Spontaneous
  Country: IT (occurrence: None)
  Receive Date: 20130701
  Receipt Date: 20130701
  Transmission Date: 20140515
  Serious: Yes (Hospitalization)
  Sender: FDA-Public Use
  Company Number: 2013P1010605

PATIENT
  Age: 44 Year
  Sex: Male

DRUGS (3)
  1. ALBENDAZOLE [Suspect]
     Indication: INFECTION PARASITIC
     Route: 048
     Dates: start: 20130228, end: 20130317
  2. VERMOX [Suspect]
     Route: 048
     Dates: start: 20130228, end: 20130317
  3. NIMESULIDE [Suspect]
     Indication: MIGRAINE
     Route: 048
     Dates: start: 20130301, end: 20130301

REACTIONS (2)
  - Erythema [None]
  - Skin exfoliation [None]
